FAERS Safety Report 19184582 (Version 1)
Quarter: 2021Q2

REPORT INFORMATION
  Report Type: Spontaneous
  Country: GB (occurrence: GB)
  Receive Date: 20210427
  Receipt Date: 20210427
  Transmission Date: 20210717
  Serious: Yes (Death)
  Sender: FDA-Public Use
  Company Number: GB-SUN PHARMACEUTICAL INDUSTRIES LTD-2021RR-293366

PATIENT
  Age: 56 Year
  Sex: Male
  Weight: 61 kg

DRUGS (1)
  1. FINGOLIMOD. [Suspect]
     Active Substance: FINGOLIMOD
     Indication: PRODUCT USED FOR UNKNOWN INDICATION
     Dosage: UNK
     Route: 048
     Dates: start: 20160818

REACTIONS (4)
  - Tubulointerstitial nephritis [Fatal]
  - Multiple sclerosis [Fatal]
  - Pyelonephritis acute [Fatal]
  - Pneumonia [Fatal]
